FAERS Safety Report 9920483 (Version 2)
Quarter: 2014Q2

REPORT INFORMATION
  Report Type: Spontaneous
  Country: US (occurrence: US)
  Receive Date: 20140224
  Receipt Date: 20140429
  Transmission Date: 20141212
  Serious: No
  Sender: FDA-Public Use
  Company Number: US-009507513-1402USA010094

PATIENT
  Age: 86 Year
  Sex: Female
  Weight: 158 kg

DRUGS (8)
  1. OXYTROL FOR WOMEN [Suspect]
     Indication: HYPERTONIC BLADDER
     Dosage: UNK, UNKNOWN
     Route: 062
     Dates: start: 20131202, end: 20140131
  2. OXYTROL FOR WOMEN [Suspect]
     Indication: INCONTINENCE
  3. OXYTROL FOR WOMEN [Suspect]
     Indication: BACK PAIN
  4. OXYTROL FOR WOMEN [Suspect]
     Indication: SLEEP DISORDER
  5. METFORMIN [Concomitant]
     Indication: GLUCOSE TOLERANCE IMPAIRED
     Dosage: UNK, UNKNOWN
  6. SIMVASTATIN [Concomitant]
     Indication: BLOOD CHOLESTEROL ABNORMAL
     Dosage: UNK, UNKNOWN
  7. LOSARTAN POTASSIUM [Concomitant]
     Indication: HYPERTENSION
     Dosage: UNK, UNKNOWN
  8. FOSAMAX [Concomitant]
     Indication: PRODUCT USED FOR UNKNOWN INDICATION

REACTIONS (6)
  - Back pain [Unknown]
  - Back pain [Recovered/Resolved]
  - Discomfort [Not Recovered/Not Resolved]
  - Application site discomfort [Recovered/Resolved]
  - Application site rash [Recovered/Resolved]
  - Incorrect drug administration duration [Unknown]
